FAERS Safety Report 4597423-7 (Version None)
Quarter: 2005Q1

REPORT INFORMATION
  Report Type: 
  Country: None (occurrence: None)
  Receive Date: 20050303
  Receipt Date: 20050223
  Transmission Date: 20050727
  Serious: Yes (Other)
  Sender: FDA-Public Use
  Company Number: PHBS2005US02805

PATIENT
  Age: 29 Year
  Sex: Female
  Weight: 60 kg

DRUGS (7)
  1. KLORVESS [Suspect]
     Dosage: 5 MEQ, UNK
  2. BUPIVACAINE [Concomitant]
     Dosage: 2.5 MG/ML, UNK
  3. FENTANYL CITRATE [Concomitant]
  4. PHENYLEPHRINE [Concomitant]
  5. OXYGEN [Concomitant]
  6. MISOPROSTOL [Concomitant]
     Route: 048
  7. MISOPROSTOL [Concomitant]
     Route: 067

REACTIONS (6)
  - APNOEA [None]
  - CARDIAC ARREST [None]
  - DEPRESSED LEVEL OF CONSCIOUSNESS [None]
  - DRUG EXPOSURE DURING PREGNANCY [None]
  - PULSE ABSENT [None]
  - VENTRICULAR FIBRILLATION [None]
